FAERS Safety Report 10243117 (Version 2)
Quarter: 2014Q2

REPORT INFORMATION
  Report Type: Spontaneous
  Country: FR (occurrence: FR)
  Receive Date: 20140618
  Receipt Date: 20140618
  Transmission Date: 20141212
  Serious: Yes (Hospitalization)
  Sender: FDA-Public Use
  Company Number: FR-TEVA-283838ISR

PATIENT
  Age: 76 Year
  Sex: Female
  Weight: 61 kg

DRUGS (2)
  1. KETOPROFENE TEVA [Suspect]
     Indication: PAIN
     Dosage: 1 DOSAGE FORMS DAILY; 2.5%
     Route: 003
     Dates: start: 201104, end: 20110403
  2. PREDNISOLONE [Suspect]

REACTIONS (7)
  - Skin toxicity [Recovered/Resolved]
  - Rash [Recovered/Resolved]
  - Onycholysis [Recovered/Resolved]
  - Hypersensitivity [Unknown]
  - Thermal burn [Unknown]
  - Blister [Unknown]
  - Onychomadesis [Unknown]
